FAERS Safety Report 5343143-0 (Version None)
Quarter: 2007Q2

REPORT INFORMATION
  Report Type: 
  Country: None (occurrence: None)
  Receive Date: 20070416
  Receipt Date: 20070222
  Transmission Date: 20071010
  Serious: No
  Sender: FDA-Public Use
  Company Number: 2007SP000582

PATIENT
  Age: 58 Year
  Sex: Male
  Weight: 99.7913 kg

DRUGS (13)
  1. LUNESTA [Suspect]
     Indication: INSOMNIA
     Dosage: SEE IMAGE
     Route: 048
     Dates: start: 20070101, end: 20070101
  2. LUNESTA [Suspect]
     Indication: INSOMNIA
     Dosage: SEE IMAGE
     Route: 048
     Dates: start: 20070101, end: 20070201
  3. LORAZEPAM [Concomitant]
  4. CRESTOR [Concomitant]
  5. CYMBALTA [Concomitant]
  6. WELLBUTRIN [Concomitant]
  7. PROVIGIL [Concomitant]
  8. ACIPHEX [Concomitant]
  9. CHANTIX [Concomitant]
  10. ASPIRIN [Concomitant]
  11. VITAMIN CAP [Concomitant]
  12. VITAMIN B-12 [Concomitant]
  13. VITAMIN B6 [Concomitant]

REACTIONS (3)
  - AMNESIA [None]
  - MIDDLE INSOMNIA [None]
  - VISION BLURRED [None]
